FAERS Safety Report 10831341 (Version 2)
Quarter: 2015Q1

REPORT INFORMATION
  Report Type: Report from Study
  Country: US (occurrence: US)
  Receive Date: 20150219
  Receipt Date: 20150224
  Transmission Date: 20150721
  Serious: No
  Sender: FDA-Public Use
  Company Number: US-ABBVIE-14P-163-1192618-00

PATIENT
  Sex: Female

DRUGS (1)
  1. HUMIRA [Suspect]
     Active Substance: ADALIMUMAB
     Indication: COLITIS ULCERATIVE

REACTIONS (8)
  - Unevaluable event [Unknown]
  - Adverse drug reaction [Unknown]
  - Abdominal distension [Unknown]
  - Flatulence [Unknown]
  - Feeling abnormal [Unknown]
  - Stress [Unknown]
  - Drug effect decreased [Unknown]
  - Discomfort [Unknown]
